FAERS Safety Report 13206746 (Version 4)
Quarter: 2018Q1

REPORT INFORMATION
  Report Type: Report from Study
  Country: None (occurrence: JP)
  Receive Date: 20170209
  Receipt Date: 20180327
  Transmission Date: 20180508
  Serious: Yes (Hospitalization, Other)
  Sender: FDA-Public Use
  Company Number: JP-ABBVIE-17P-087-1868376-00

PATIENT
  Age: 13 Year
  Sex: Female

DRUGS (20)
  1. TAKEPRON [Concomitant]
     Active Substance: LANSOPRAZOLE
     Indication: PRODUCT USED FOR UNKNOWN INDICATION
     Route: 048
     Dates: start: 20130826, end: 20151112
  2. NEXIUM [Concomitant]
     Active Substance: ESOMEPRAZOLE MAGNESIUM
     Indication: PRODUCT USED FOR UNKNOWN INDICATION
     Route: 048
     Dates: start: 20151113
  3. MUCODYNE [Concomitant]
     Active Substance: CARBOCYSTEINE
     Indication: CYSTIC FIBROSIS PANCREATIC
     Route: 048
     Dates: start: 20130826
  4. LASIX [Concomitant]
     Active Substance: FUROSEMIDE
     Route: 048
     Dates: start: 20160415, end: 20160513
  5. PULMOZYME [Concomitant]
     Active Substance: DORNASE ALFA
     Indication: CYSTIC FIBROSIS PANCREATIC
     Route: 055
     Dates: start: 20130826
  6. LIPACREON [Suspect]
     Active Substance: PANCRELIPASE
     Route: 048
     Dates: start: 20170303
  7. BISOLVON [Concomitant]
     Active Substance: BROMHEXINE HYDROCHLORIDE
     Indication: CYSTIC FIBROSIS PANCREATIC
     Route: 055
     Dates: start: 20130826
  8. TRANSAMIN [Concomitant]
     Active Substance: TRANEXAMIC ACID
     Indication: PRODUCT USED FOR UNKNOWN INDICATION
     Route: 048
     Dates: start: 20151113
  9. FERROMIA [Concomitant]
     Active Substance: SODIUM FERROUS CITRATE
     Indication: ANAEMIA
     Route: 048
     Dates: start: 20160219, end: 20160415
  10. LIPACREON [Suspect]
     Active Substance: PANCRELIPASE
     Dosage: 450 MG, QD
     Route: 048
     Dates: start: 20160617, end: 20170302
  11. INTAL [Concomitant]
     Active Substance: CROMOLYN SODIUM
     Indication: CYSTIC FIBROSIS PANCREATIC
     Route: 055
     Dates: start: 20130826
  12. BIO-THREE [Concomitant]
     Active Substance: HERBALS
     Indication: PRODUCT USED FOR UNKNOWN INDICATION
     Route: 048
     Dates: start: 20151113
  13. LIPACREON [Suspect]
     Active Substance: PANCRELIPASE
     Indication: PANCREATIC FAILURE
     Dosage: 150 MG, QID
     Route: 048
     Dates: start: 20130826, end: 20160616
  14. URSO [Concomitant]
     Active Substance: URSODIOL
     Indication: PRODUCT USED FOR UNKNOWN INDICATION
     Route: 048
     Dates: start: 20140110
  15. HOKUNALIN [Concomitant]
     Active Substance: TULOBUTEROL
     Indication: CYSTIC FIBROSIS PANCREATIC
     Route: 062
     Dates: start: 20160513
  16. KLARICID [Concomitant]
     Active Substance: CLARITHROMYCIN
     Indication: CYSTIC FIBROSIS PANCREATIC
     Route: 048
     Dates: start: 20130826
  17. SINGULAIR [Concomitant]
     Active Substance: MONTELUKAST SODIUM
     Indication: CYSTIC FIBROSIS PANCREATIC
     Route: 048
     Dates: start: 20151218
  18. LASIX [Concomitant]
     Active Substance: FUROSEMIDE
     Indication: PRODUCT USED FOR UNKNOWN INDICATION
     Route: 048
     Dates: start: 20160219, end: 20160414
  19. TOBI [Concomitant]
     Active Substance: TOBRAMYCIN
     Indication: CYSTIC FIBROSIS PANCREATIC
     Route: 055
     Dates: start: 20131101
  20. CLARITIN [Concomitant]
     Active Substance: LORATADINE
     Indication: THROAT IRRITATION
     Route: 048
     Dates: start: 20151113, end: 20151217

REACTIONS (5)
  - Haematemesis [Recovering/Resolving]
  - Shock [Unknown]
  - Ascites [Recovering/Resolving]
  - Haemoptysis [Recovering/Resolving]
  - Haematochezia [Recovered/Resolved]

NARRATIVE: CASE EVENT DATE: 20150824
